FAERS Safety Report 6518741-9 (Version None)
Quarter: 2009Q4

REPORT INFORMATION
  Report Type: 
  Country: None (occurrence: None)
  Receive Date: 20091228
  Receipt Date: 20091216
  Transmission Date: 20100525
  Serious: Yes (Other)
  Sender: FDA-Public Use
  Company Number: US-JNJFOC-20091205348

PATIENT
  Age: 60 Year
  Sex: Male

DRUGS (1)
  1. REMICADE [Suspect]
     Indication: CHOROIDAL NEOVASCULARISATION
     Dosage: 0.5MG/0.05ML
     Route: 050

REACTIONS (1)
  - MACULAR DEGENERATION [None]
